FAERS Safety Report 4896694-7 (Version None)
Quarter: 2006Q1

REPORT INFORMATION
  Report Type: 
  Country: None (occurrence: None)
  Receive Date: 20060131
  Receipt Date: 20051121
  Transmission Date: 20060701
  Serious: Yes (Hospitalization)
  Sender: FDA-Public Use
  Company Number: CA-AMGEN-ICO158227

PATIENT
  Sex: Male

DRUGS (14)
  1. DARBEPOETIN ALFA [Suspect]
     Indication: RENAL FAILURE CHRONIC
     Route: 058
     Dates: start: 20050304, end: 20051215
  2. ATORVASTATIN CALCIUM [Concomitant]
  3. SYNTHROID [Concomitant]
  4. FOLIC ACID [Concomitant]
  5. NOVASEN [Concomitant]
  6. DIABETA [Concomitant]
  7. ALLOPURINOL [Concomitant]
  8. COREG [Concomitant]
  9. FUROSEMIDE [Concomitant]
  10. CALCIUM GLUCONATE [Concomitant]
  11. VIAGRA [Concomitant]
  12. OMEGA 3 [Concomitant]
  13. PANTOPRAZOLE SODIUM [Concomitant]
  14. APRESOLINE [Concomitant]

REACTIONS (2)
  - ATRIAL FIBRILLATION [None]
  - MYOCARDIAL INFARCTION [None]
